FAERS Safety Report 4881864-4 (Version None)
Quarter: 2006Q1

REPORT INFORMATION
  Report Type: 
  Country: None (occurrence: None)
  Receive Date: 20060112
  Receipt Date: 20060112
  Transmission Date: 20060701
  Serious: Yes (Death)
  Sender: FDA-Public Use
  Company Number: None

PATIENT
  Age: 40 Year
  Sex: Male
  Weight: 65 kg

DRUGS (20)
  1. GEODON [Suspect]
     Indication: ALCOHOL WITHDRAWAL SYNDROME
     Dosage: 20 MG ONE TIME IM
     Route: 030
     Dates: start: 20040805, end: 20040805
  2. LORAZEPAM [Concomitant]
  3. PEPCID [Concomitant]
  4. PROTONIX [Concomitant]
  5. REGULAR INSULIN [Concomitant]
  6. FOLIC ACID [Concomitant]
  7. THIAMINE [Concomitant]
  8. MULTIVITS [Concomitant]
  9. LACTULOSE [Concomitant]
  10. LACUTLOSE [Concomitant]
  11. HEPARIN [Concomitant]
  12. FOLIC ACID [Concomitant]
  13. REGULAR INSULIN DRIP [Concomitant]
  14. CLONIDINE [Concomitant]
  15. HADOL [Concomitant]
  16. CLONIDINE HCL [Concomitant]
  17. CLONIDINE [Concomitant]
  18. POTASSIUM PHOSPHATES [Concomitant]
  19. CALCIUM CHLORIDE [Concomitant]
  20. DUONEB [Concomitant]

REACTIONS (1)
  - RESPIRATORY ARREST [None]
